FAERS Safety Report 13735359 (Version 3)
Quarter: 2017Q3

REPORT INFORMATION
  Report Type: Spontaneous
  Country: US (occurrence: US)
  Receive Date: 20170710
  Receipt Date: 20170717
  Transmission Date: 20171127
  Serious: No
  Sender: FDA-Public Use
  Company Number: US-PFIZER INC-2017287926

PATIENT
  Sex: Female

DRUGS (1)
  1. EPIPEN [Suspect]
     Active Substance: EPINEPHRINE
     Dosage: 0.3 MG, UNK

REACTIONS (7)
  - Vomiting [Unknown]
  - Headache [Unknown]
  - Lethargy [Unknown]
  - Nausea [Unknown]
  - Product quality issue [Unknown]
  - Product use issue [Unknown]
  - Accidental exposure to product [Unknown]
